FAERS Safety Report 4288203-0 (Version None)
Quarter: 2004Q1

REPORT INFORMATION
  Report Type: 
  Country: None (occurrence: None)
  Receive Date: 20040209
  Receipt Date: 20030904
  Transmission Date: 20041129
  Serious: No
  Sender: FDA-Public Use
  Company Number: US-GLAXOSMITHKLINE-A0424741A

PATIENT
  Age: 27 Year
  Sex: Female

DRUGS (1)
  1. PAXIL [Suspect]
     Indication: POSTPARTUM DEPRESSION
     Dosage: 10MG PER DAY
     Route: 048
     Dates: end: 20030701

REACTIONS (5)
  - ANXIETY [None]
  - DRUG WITHDRAWAL SYNDROME [None]
  - SEXUAL DYSFUNCTION [None]
  - TINNITUS [None]
  - WEIGHT INCREASED [None]
